FAERS Safety Report 4885190-9 (Version None)
Quarter: 2005Q4

REPORT INFORMATION
  Report Type: 
  Country: None (occurrence: None)
  Receive Date: 20051201
  Receipt Date: 20050902
  Transmission Date: 20060501
  Serious: No
  Sender: FDA-Public Use
  Company Number: 2005PV001849

PATIENT
  Age: 51 Year
  Sex: Male
  Weight: 104.3273 kg

DRUGS (6)
  1. BYETTA [Suspect]
     Indication: DIABETES MELLITUS NON-INSULIN-DEPENDENT
     Dosage: 5 MCG; BID; SC
     Route: 058
     Dates: start: 20050901
  2. METFORMIN HCL [Concomitant]
  3. GLIPIZIDE ER [Concomitant]
  4. ACTOS [Concomitant]
  5. COZAAR [Concomitant]
  6. LIPITOR [Concomitant]

REACTIONS (5)
  - BLOOD GLUCOSE DECREASED [None]
  - DIARRHOEA [None]
  - HANGOVER [None]
  - HEADACHE [None]
  - NAUSEA [None]
